FAERS Safety Report 6135934-3 (Version None)
Quarter: 2009Q1

REPORT INFORMATION
  Report Type: 
  Country: None (occurrence: None)
  Receive Date: 20090329
  Receipt Date: 20080512
  Transmission Date: 20090719
  Serious: No
  Sender: FDA-Public Use
  Company Number: US-BAUSCH-2008BL002122

PATIENT
  Age: 53 Year
  Sex: Female
  Weight: 63 kg

DRUGS (2)
  1. LEVOBUNOLOL HYDROCHLORIDE [Suspect]
     Indication: GLAUCOMA
     Route: 047
     Dates: start: 20080320
  2. MURO 128 5% OPHTHALMIC OINTMENT [Concomitant]
     Indication: CORNEAL DYSTROPHY
     Route: 047

REACTIONS (3)
  - EYE IRRITATION [None]
  - RASH PRURITIC [None]
  - SKIN BURNING SENSATION [None]
